FAERS Safety Report 5896950-X (Version None)
Quarter: 2008Q3

REPORT INFORMATION
  Report Type: 
  Country: None (occurrence: None)
  Receive Date: 20080924
  Receipt Date: 20080707
  Transmission Date: 20090109
  Serious: Yes (Other)
  Sender: FDA-Public Use
  Company Number: US-ASTRAZENECA-2008UW00667

PATIENT
  Age: 714 Month
  Sex: Male
  Weight: 122.5 kg

DRUGS (3)
  1. SEROQUEL [Suspect]
     Indication: SCHIZOPHRENIA
     Dosage: 25 MG, 50 MG, 100 MG
     Route: 048
     Dates: start: 20030713
  2. SEROQUEL [Suspect]
     Indication: PSYCHOTIC DISORDER
     Dosage: 25 MG, 50 MG, 100 MG
     Route: 048
     Dates: start: 20030713
  3. SEROQUEL [Suspect]
     Indication: DEPRESSION
     Dosage: 25 MG, 50 MG, 100 MG
     Route: 048
     Dates: start: 20030713

REACTIONS (4)
  - BLOOD CHOLESTEROL INCREASED [None]
  - CATARACT [None]
  - DIABETES MELLITUS [None]
  - HYPERTENSION [None]
